FAERS Safety Report 10251587 (Version 1)
Quarter: 2014Q2

REPORT INFORMATION
  Report Type: Spontaneous
  Country: FR (occurrence: FR)
  Receive Date: 20140623
  Receipt Date: 20140623
  Transmission Date: 20141212
  Serious: Yes (Hospitalization)
  Sender: FDA-Public Use
  Company Number: FR-ROCHE-1421184

PATIENT
  Age: 66 Year
  Sex: Male

DRUGS (13)
  1. ROCEPHINE [Suspect]
     Indication: URINARY TRACT INFECTION
     Route: 042
     Dates: start: 20131203, end: 20131204
  2. ROCEPHINE [Suspect]
     Route: 042
     Dates: start: 20131225, end: 20131230
  3. CEFTRIAXONE [Suspect]
     Indication: UROSEPSIS
     Route: 042
     Dates: start: 20131105, end: 20131106
  4. OFLOCET [Suspect]
     Indication: UROSEPSIS
     Route: 048
     Dates: start: 20131106, end: 20131113
  5. OFLOCET [Suspect]
     Route: 048
     Dates: start: 20131204, end: 20131226
  6. FLAGYL [Suspect]
     Indication: UROSEPSIS
     Route: 048
     Dates: end: 20131219
  7. AMOXICILLINE [Suspect]
     Indication: URINARY TRACT INFECTION
     Route: 048
     Dates: start: 20131230, end: 20140121
  8. STAGID [Concomitant]
     Route: 065
  9. DIAMICRON [Concomitant]
     Route: 065
  10. LASILIX FAIBLE [Concomitant]
     Route: 065
  11. RAMIPRIL [Concomitant]
  12. DIFFU K [Concomitant]
     Route: 065
  13. MECIR [Concomitant]
     Route: 065

REACTIONS (2)
  - Weight decreased [Recovered/Resolved]
  - Clostridium difficile colitis [Recovered/Resolved]
